FAERS Safety Report 6205987-2 (Version None)
Quarter: 2009Q2

REPORT INFORMATION
  Report Type: 
  Country: None (occurrence: None)
  Receive Date: 20090527
  Receipt Date: 20090527
  Transmission Date: 20091009
  Serious: No
  Sender: FDA-Public Use
  Company Number: None

PATIENT
  Age: 38 Year
  Sex: Male

DRUGS (2)
  1. RANITIDINE [Suspect]
     Indication: DYSPEPSIA
     Dosage: 150MG TWICE A DAY 047
     Dates: start: 20090327, end: 20090402
  2. RANITIDINE [Suspect]
     Dosage: 150MG ONCE A DAY 047
     Dates: start: 20090403

REACTIONS (1)
  - DRUG INEFFECTIVE [None]
